FAERS Safety Report 5613484-8 (Version None)
Quarter: 2008Q1

REPORT INFORMATION
  Report Type: 
  Country: None (occurrence: None)
  Receive Date: 20080129
  Receipt Date: 20080122
  Transmission Date: 20080703
  Serious: Yes (Hospitalization)
  Sender: FDA-Public Use
  Company Number: THQ2008A00268

PATIENT
  Age: 74 Year
  Sex: Female

DRUGS (8)
  1. LANSOPRAZOLE [Suspect]
     Indication: OESOPHAGEAL DISORDER
     Dosage: 30 MG (1 D), PER ORAL
     Route: 048
  2. ALLOPURINOL [Suspect]
     Indication: GOUT
     Dosage: 100 MG (1 D), PER ORAL
     Route: 048
     Dates: end: 20061004
  3. ATENOLOL [Suspect]
     Dosage: 100 MG (1 D), PER ORAL
     Route: 048
     Dates: end: 20061004
  4. HYDRALAZINE HYDROCHLORIDE [Suspect]
     Indication: ESSENTIAL HYPERTENSION
     Dosage: 150 MG (1 D), PER ORAL
     Route: 048
     Dates: end: 20061004
  5. IRBESARTAN [Suspect]
     Indication: ESSENTIAL HYPERTENSION
     Dosage: 450 MG (1 D), PER ORAL
     Route: 048
     Dates: end: 20061004
  6. NIFEDIPINE [Suspect]
     Indication: ESSENTIAL HYPERTENSION
     Dosage: 60 MG (1 D), PER ORAL
     Route: 048
     Dates: end: 20061004
  7. OXAZEPAM [Suspect]
     Indication: ANXIETY DISORDER
     Dosage: 30 MG (1 D), PER ORAL
     Route: 048
     Dates: end: 20061004
  8. SIMVASTATIN [Suspect]
     Dosage: 40 MG (1 D), PER ORAL
     Route: 048
     Dates: end: 20061004

REACTIONS (2)
  - RENAL IMPAIRMENT [None]
  - RHABDOMYOLYSIS [None]
